FAERS Safety Report 25682929 (Version 1)
Quarter: 2025Q3

REPORT INFORMATION
  Report Type: Spontaneous
  Country: US (occurrence: US)
  Receive Date: 20250814
  Receipt Date: 20250814
  Transmission Date: 20251020
  Serious: Yes (Other)
  Sender: BLUEPRINT MEDICINES
  Company Number: US-Blueprint Medicines Corporation-2025-AER-01771

PATIENT
  Sex: Male

DRUGS (2)
  1. AYVAKIT [Suspect]
     Active Substance: AVAPRITINIB
     Indication: Systemic mastocytosis
     Route: 065
  2. CLOMIPRAMINE [Concomitant]
     Active Substance: CLOMIPRAMINE
     Indication: Product used for unknown indication
     Route: 065

REACTIONS (11)
  - Erectile dysfunction [Not Recovered/Not Resolved]
  - Urinary retention [Unknown]
  - Impaired gastric emptying [Unknown]
  - Restless legs syndrome [Unknown]
  - Postural orthostatic tachycardia syndrome [Unknown]
  - Pelvic pain [Unknown]
  - Seborrhoeic dermatitis [Unknown]
  - Small fibre neuropathy [Unknown]
  - Benign fasciculation syndrome [Unknown]
  - Reduced parasympathetic activity [Unknown]
  - Dry eye [Unknown]
